FAERS Safety Report 19055731 (Version 1)
Quarter: 2021Q1

REPORT INFORMATION
  Report Type: Spontaneous
  Country: US (occurrence: US)
  Receive Date: 20210324
  Receipt Date: 20210324
  Transmission Date: 20210420
  Serious: No
  Sender: FDA-Public Use
  Company Number: None

PATIENT
  Age: 17 Year
  Sex: Female
  Weight: 54 kg

DRUGS (1)
  1. METHYLPHENIDATE 54MG ER TABLETS [Suspect]
     Active Substance: METHYLPHENIDATE
     Indication: ATTENTION DEFICIT HYPERACTIVITY DISORDER
     Dosage: ?          QUANTITY:30 TABLET(S);?
     Route: 048
     Dates: start: 20210322

REACTIONS (4)
  - Drug ineffective [None]
  - Heart rate abnormal [None]
  - Thinking abnormal [None]
  - Product substitution issue [None]

NARRATIVE: CASE EVENT DATE: 20210324
